FAERS Safety Report 13378901 (Version 1)
Quarter: 2017Q1

REPORT INFORMATION
  Report Type: Spontaneous
  Country: US (occurrence: US)
  Receive Date: 20170328
  Receipt Date: 20170328
  Transmission Date: 20170429
  Serious: No
  Sender: FDA-Public Use
  Company Number: US-ROCHE-1154895

PATIENT
  Age: 58 Year
  Sex: Female
  Weight: 67.19 kg

DRUGS (16)
  1. PROGESTERONE. [Concomitant]
     Active Substance: PROGESTERONE
  2. DOXICYCLIN [Concomitant]
     Active Substance: DOXYCYCLINE
  3. ESTRADIOL. [Concomitant]
     Active Substance: ESTRADIOL
  4. TESTOSTERONE CREAM [Concomitant]
     Active Substance: TESTOSTERONE
  5. CYTOMEL [Concomitant]
     Active Substance: LIOTHYRONINE SODIUM
  6. SINGULAIR [Concomitant]
     Active Substance: MONTELUKAST SODIUM
  7. LUNESTA [Concomitant]
     Active Substance: ESZOPICLONE
  8. XANAX [Concomitant]
     Active Substance: ALPRAZOLAM
  9. XOLAIR [Suspect]
     Active Substance: OMALIZUMAB
     Indication: ASTHMA
     Route: 058
     Dates: start: 20121102
  10. ALVESCO [Concomitant]
     Active Substance: CICLESONIDE
  11. VALTREX [Concomitant]
     Active Substance: VALACYCLOVIR HYDROCHLORIDE
  12. XOLAIR [Suspect]
     Active Substance: OMALIZUMAB
     Indication: HYPERSENSITIVITY
  13. ACCOLATE [Concomitant]
     Active Substance: ZAFIRLUKAST
  14. NASALCROM [Concomitant]
     Active Substance: CROMOLYN SODIUM
  15. METROGEL [Concomitant]
     Active Substance: METRONIDAZOLE
  16. EPIPEN [Concomitant]
     Active Substance: EPINEPHRINE

REACTIONS (1)
  - Rash [Recovered/Resolved]

NARRATIVE: CASE EVENT DATE: 20121105
